FAERS Safety Report 10780832 (Version 9)
Quarter: 2015Q3

REPORT INFORMATION
  Report Type: Report from Study
  Country: CN (occurrence: CN)
  Receive Date: 20150210
  Receipt Date: 20150731
  Transmission Date: 20151125
  Serious: Yes (Life-Threatening, Hospitalization)
  Sender: FDA-Public Use
  Company Number: CN-AMGEN-CHNCT2014101239

PATIENT
  Age: 68 Year
  Sex: Female
  Weight: 40 kg

DRUGS (31)
  1. CEFOPERAZONE + SULBACTAM SPENSER [Concomitant]
     Indication: LUNG INFECTION
     Dosage: 9 G, TID
     Route: 042
     Dates: start: 20141222, end: 20150120
  2. TIENAM [Concomitant]
     Active Substance: CILASTATIN SODIUM\IMIPENEM
     Indication: LUNG INFECTION
     Dosage: 2 G, QID
     Route: 042
     Dates: start: 20141223, end: 20141230
  3. NIFEDIPINE. [Concomitant]
     Active Substance: NIFEDIPINE
     Indication: CARDIAC FAILURE ACUTE
     Dosage: 10 MG, UNK
     Dates: start: 20141222, end: 20150114
  4. ESOMEPRAZOLE SODIUM. [Concomitant]
     Active Substance: ESOMEPRAZOLE SODIUM
     Indication: PROPHYLAXIS
     Dosage: 40 MG, UNK
     Route: 042
     Dates: start: 20141216, end: 20150123
  5. RECOMBINANT HUMAN ERYTHROPOIETIN [Concomitant]
     Active Substance: ERYTHROPOIETIN
     Indication: ANAEMIA
     Dosage: 1000 IU, QD, EVERY OTHER DAY
     Route: 058
     Dates: start: 20141225, end: 20150116
  6. DIPHENHYDRAMINE. [Concomitant]
     Active Substance: DIPHENHYDRAMINE
     Indication: PROPHYLAXIS
     Dosage: 15 ML, UNK
     Route: 048
     Dates: start: 20141217, end: 20150114
  7. DEXAMETHASONE. [Concomitant]
     Active Substance: DEXAMETHASONE
     Indication: PROPHYLAXIS
  8. SPIRONOLACTONE. [Concomitant]
     Active Substance: SPIRONOLACTONE
     Indication: CARDIAC FAILURE ACUTE
     Dosage: 20 TO 40 MG, QD, EVERY MONTH
     Route: 048
     Dates: start: 20141216, end: 20150113
  9. DEXAMETHASONE. [Concomitant]
     Active Substance: DEXAMETHASONE
     Indication: CARDIAC FAILURE ACUTE
  10. HYDROCHLOROTHIAZIDE. [Concomitant]
     Active Substance: HYDROCHLOROTHIAZIDE
     Indication: CARDIAC FAILURE
  11. SPIRONOLACTONE. [Concomitant]
     Active Substance: SPIRONOLACTONE
     Indication: CARDIAC FAILURE
  12. TRIMETAZIDINE [Concomitant]
     Active Substance: TRIMETAZIDINE
     Indication: CARDIAC FAILURE
     Dosage: 60 MG, TID
     Route: 048
     Dates: start: 20141216, end: 20141226
  13. MYRTOL [Concomitant]
     Active Substance: HERBALS
     Indication: LUNG INFECTION
     Dosage: 0.9 G, TID
     Route: 048
     Dates: start: 20141225, end: 20141226
  14. GRANULOCYTE COLONY STIMULATING FACTOR [Concomitant]
     Active Substance: GRANULOCYTE COLONY-STIMULATING FACTOR NOS
     Indication: NEUTROPENIA
  15. PREDNISONE. [Suspect]
     Active Substance: PREDNISONE
     Indication: PLASMA CELL MYELOMA
     Dosage: 80 MG, PER CHEMO REGIM
     Route: 048
     Dates: start: 20141215, end: 20141218
  16. VORICONAZOLE. [Concomitant]
     Active Substance: VORICONAZOLE
     Indication: LUNG INFECTION
     Dosage: 0.4 G, BID
     Route: 042
     Dates: start: 20141225, end: 20150108
  17. TARGOCID [Concomitant]
     Active Substance: TEICOPLANIN
     Indication: LUNG INFECTION
     Dosage: 0.4 G, QD
     Route: 042
     Dates: start: 20141225, end: 20150121
  18. HYDROCHLOROTHIAZIDE. [Concomitant]
     Active Substance: HYDROCHLOROTHIAZIDE
     Indication: CARDIAC FAILURE ACUTE
     Dosage: 25 MG, QD
     Dates: start: 20141216, end: 20150116
  19. TROPISETRON [Concomitant]
     Active Substance: TROPISETRON
     Indication: PROPHYLAXIS
     Dosage: 5 MG, QD
     Route: 042
     Dates: start: 20141216, end: 20141224
  20. AMBROXOL [Concomitant]
     Active Substance: AMBROXOL
     Indication: LUNG INFECTION
     Dosage: 180 MG, TID
     Route: 042
     Dates: start: 20141225, end: 20150126
  21. IPRATROPIUM BROMIDE. [Concomitant]
     Active Substance: IPRATROPIUM BROMIDE
     Indication: LUNG INFECTION
     Dosage: 1.5 MG, TID
     Route: 055
     Dates: start: 20141225, end: 20141226
  22. IBUPROFEN. [Concomitant]
     Active Substance: IBUPROFEN
     Indication: PYREXIA
     Dosage: 15 ML, UNK
     Route: 048
     Dates: start: 20141223, end: 20150117
  23. NIFEDIPINE. [Concomitant]
     Active Substance: NIFEDIPINE
     Indication: CARDIAC FAILURE
  24. CREATINE PHOSPHATE [Concomitant]
     Indication: PROPHYLAXIS
     Dosage: 40 MG TO 2 G, QD
     Route: 042
     Dates: start: 20141216, end: 20141231
  25. GRANULOCYTE COLONY STIMULATING FACTOR [Concomitant]
     Active Substance: GRANULOCYTE COLONY-STIMULATING FACTOR NOS
     Indication: LEUKOPENIA
     Dosage: 150 MUG, UNK
     Route: 042
     Dates: start: 20141222, end: 20150104
  26. CARFILZOMIB [Suspect]
     Active Substance: CARFILZOMIB
     Indication: PLASMA CELL MYELOMA
     Dosage: 36 MG/M2, PER CHEMO REGIM
     Route: 042
     Dates: start: 20141215
  27. VALACICLOVIR [Concomitant]
     Active Substance: VALACYCLOVIR HYDROCHLORIDE
     Indication: PROPHYLAXIS
     Dosage: 0.3 TO 0.6 G, BID
     Route: 048
     Dates: start: 20141212, end: 20150104
  28. CREATINE PHOSPHATE [Concomitant]
     Indication: CARDIAC FAILURE
  29. DEXAMETHASONE. [Concomitant]
     Active Substance: DEXAMETHASONE
     Indication: PYREXIA
     Dosage: 3-5 MG, UNK
     Route: 042
     Dates: start: 20141222, end: 20150123
  30. ITRACONAZOLE. [Concomitant]
     Active Substance: ITRACONAZOLE
     Indication: LUNG INFECTION
     Dosage: 0.4 TO 1.5 G, AS NECESSARY, BID
     Route: 048
     Dates: start: 20141223, end: 20150113
  31. MELPHALAN [Suspect]
     Active Substance: MELPHALAN
     Indication: PLASMA CELL MYELOMA
     Dosage: 8 MG, PER CHEMO REGIM
     Route: 048
     Dates: start: 20141215, end: 20141218

REACTIONS (4)
  - Renal failure [Recovered/Resolved]
  - Lung infection [Recovered/Resolved]
  - Acute left ventricular failure [Recovered/Resolved]
  - Acute left ventricular failure [Recovered/Resolved]

NARRATIVE: CASE EVENT DATE: 20141226
